FAERS Safety Report 4442602-2 (Version None)
Quarter: 2004Q3

REPORT INFORMATION
  Report Type: 
  Country: None (occurrence: None)
  Receive Date: 20040903
  Receipt Date: 20040720
  Transmission Date: 20050211
  Serious: Yes (Other)
  Sender: FDA-Public Use
  Company Number: 2004UW15125

PATIENT
  Age: 53 Year
  Sex: Female
  Weight: 72.5755 kg

DRUGS (5)
  1. CRESTOR [Suspect]
     Indication: HYPERCHOLESTEROLAEMIA
     Dosage: 20  MG QD PO
     Route: 048
  2. SYNTHROID [Concomitant]
  3. ESTRACE [Concomitant]
  4. XANAX [Concomitant]
  5. POTASSIUM [Concomitant]

REACTIONS (6)
  - BLOOD POTASSIUM DECREASED [None]
  - CONSTIPATION [None]
  - ECCHYMOSIS [None]
  - HAEMORRHAGE [None]
  - OEDEMA PERIPHERAL [None]
  - RENAL FAILURE [None]
